FAERS Safety Report 5096969-5 (Version None)
Quarter: 2006Q3

REPORT INFORMATION
  Report Type: 
  Country: None (occurrence: None)
  Receive Date: 20060831
  Receipt Date: 20060815
  Transmission Date: 20061208
  Serious: Yes (Hospitalization)
  Sender: FDA-Public Use
  Company Number: TRP_0854_2006

PATIENT
  Age: 55 Year
  Sex: Male
  Weight: 72.1219 kg

DRUGS (3)
  1. RIBASPHERE [Suspect]
     Indication: HEPATITIS C
     Dosage: 1000 MG QDAY PO
     Route: 048
     Dates: start: 20060416
  2. PEG-INTRON [Suspect]
     Indication: HEPATITIS C
     Dosage: 0.4 ML QWK SC
     Route: 058
     Dates: start: 20060416
  3. AMBIEN [Concomitant]

REACTIONS (6)
  - ALOPECIA [None]
  - BURNING SENSATION [None]
  - INJECTION SITE IRRITATION [None]
  - INJECTION SITE VESICLES [None]
  - MOOD ALTERED [None]
  - URINARY TRACT INFECTION [None]
